FAERS Safety Report 8800588 (Version 4)
Quarter: 2014Q2

REPORT INFORMATION
  Report Type: Report from Study
  Country: JP (occurrence: JP)
  Receive Date: 20120921
  Receipt Date: 20140428
  Transmission Date: 20141212
  Serious: Yes (Disabling, Other)
  Sender: FDA-Public Use
  Company Number: JP-VERTEX PHARMACEUTICAL INC.-AE-2012-007091

PATIENT
  Age: 71 Year
  Sex: Female

DRUGS (14)
  1. VX-950 (TELAPREVIR) [Suspect]
     Indication: CHRONIC HEPATITIS C
     Dosage: 1500 MG, QD
     Route: 048
     Dates: start: 20120307, end: 20120417
  2. VX-950 (TELAPREVIR) [Suspect]
     Dosage: 1500 MG, QD
     Route: 048
     Dates: start: 20120425, end: 20120530
  3. RIBAVIRIN [Suspect]
     Indication: CHRONIC HEPATITIS C
     Dosage: 400 MG, QD
     Route: 048
     Dates: start: 20120307, end: 20120410
  4. RIBAVIRIN [Suspect]
     Dosage: 200 MG, QD
     Route: 048
     Dates: start: 20120411, end: 20120417
  5. RIBAVIRIN [Suspect]
     Dosage: 200 MG, QD
     Route: 048
     Dates: start: 20120425, end: 20120605
  6. RIBAVIRIN [Suspect]
     Dosage: 200 MG, QD
     Route: 048
     Dates: start: 20120711, end: 20120822
  7. PEGINTERFERON ALFA-2B [Suspect]
     Indication: CHRONIC HEPATITIS C
     Dosage: 1.0 ?G/KG, QW
     Route: 058
     Dates: start: 20120307, end: 20120815
  8. ZYLORIC [Concomitant]
     Dosage: 200 MG, QD
     Route: 048
     Dates: start: 20120320
  9. JANUVIA [Concomitant]
     Dosage: 50 MG, QD
     Route: 048
  10. MAGLAX [Concomitant]
     Dosage: 500 MG, QD
     Route: 048
     Dates: start: 20120307
  11. MAGLAX [Concomitant]
     Dosage: 1500 MG, QD
     Route: 048
  12. PROMAC [Concomitant]
     Dosage: 150 MG, QD
     Route: 048
     Dates: start: 20120307
  13. LOXONIN [Concomitant]
     Dosage: 60 MG, QD
     Route: 048
     Dates: start: 20120307, end: 20120309
  14. MUCOSTA [Concomitant]
     Dosage: 100 MG, QD
     Route: 048
     Dates: start: 20120307, end: 20120424

REACTIONS (2)
  - VIIth nerve paralysis [Recovered/Resolved]
  - Haemoglobin decreased [Recovered/Resolved]
